FAERS Safety Report 8411539-6 (Version None)
Quarter: 2012Q2

REPORT INFORMATION
  Report Type: 
  Country: None (occurrence: None)
  Receive Date: 20120605
  Receipt Date: 20120510
  Transmission Date: 20120825
  Serious: No
  Sender: FDA-Public Use
  Company Number: US-AMGEN-USASP2012029622

PATIENT
  Age: 38 Year
  Sex: Female

DRUGS (1)
  1. ENBREL [Suspect]
     Indication: PSORIASIS
     Dosage: 50 MG, 2 TIMES/WK
     Dates: start: 20120423

REACTIONS (8)
  - ABDOMINAL PAIN [None]
  - DYSPNOEA [None]
  - ARTHRALGIA [None]
  - HEADACHE [None]
  - ABDOMINAL DISCOMFORT [None]
  - FACTOR II MUTATION [None]
  - BACK PAIN [None]
  - THERAPEUTIC RESPONSE DECREASED [None]
